FAERS Safety Report 6021209-X (Version None)
Quarter: 2008Q4

REPORT INFORMATION
  Report Type: 
  Country: None (occurrence: None)
  Receive Date: 20081229
  Receipt Date: 20081215
  Transmission Date: 20090506
  Serious: Yes (Hospitalization)
  Sender: FDA-Public Use
  Company Number: JP-EISAI MEDICAL RESEARCH-E0800-00017-SOL-JP

PATIENT
  Sex: Male

DRUGS (5)
  1. SALAGEN [Suspect]
     Indication: DRY MOUTH
     Route: 048
     Dates: start: 20080612, end: 20080612
  2. ADALAT [Concomitant]
     Dosage: UNKNOWN
     Route: 048
  3. BLOPRESS [Concomitant]
     Dosage: UNKNOWN
     Route: 048
  4. FLIVAS [Concomitant]
     Dosage: UNKNOWN
     Route: 048
  5. RIZABEN [Concomitant]
     Indication: SCAR
     Route: 048
     Dates: start: 20071119

REACTIONS (3)
  - FAECAL INCONTINENCE [None]
  - LOSS OF CONSCIOUSNESS [None]
  - VOMITING [None]
